FAERS Safety Report 5778940-0 (Version None)
Quarter: 2008Q2

REPORT INFORMATION
  Report Type: 
  Country: None (occurrence: None)
  Receive Date: 20080613
  Receipt Date: 20080510
  Transmission Date: 20081010
  Serious: Yes (Other)
  Sender: FDA-Public Use
  Company Number: US-1166168

PATIENT

DRUGS (1)
  1. TRIAMCINOLONE ACETATE SUSPENSION [Suspect]
     Dosage: (INTRAOCULAR)
     Route: 031

REACTIONS (2)
  - ENDOPHTHALMITIS [None]
  - INTRAOCULAR PRESSURE INCREASED [None]
